FAERS Safety Report 22987853 (Version 6)
Quarter: 2023Q4

REPORT INFORMATION
  Report Type: Report from Study
  Country: FR (occurrence: FR)
  Receive Date: 20230926
  Receipt Date: 20231204
  Transmission Date: 20240109
  Serious: Yes (Other)
  Sender: FDA-Public Use
  Company Number: FR-002147023-NVSC2023FR206065

PATIENT
  Age: 17 Year
  Sex: Female
  Weight: 68 kg

DRUGS (3)
  1. MEKINIST [Suspect]
     Active Substance: TRAMETINIB DIMETHYL SULFOXIDE
     Indication: Glioma
     Dosage: 1.5 MG, QD
     Route: 048
     Dates: start: 20221026, end: 202304
  2. MEKINIST [Suspect]
     Active Substance: TRAMETINIB DIMETHYL SULFOXIDE
     Dosage: 1 MG, QD
     Route: 048
     Dates: start: 20230504
  3. TAFINLAR [Suspect]
     Active Substance: DABRAFENIB MESYLATE
     Indication: Glioma
     Dosage: 150 MG, QD (2X)
     Route: 048
     Dates: start: 20221114

REACTIONS (1)
  - Retinopathy [Recovering/Resolving]

NARRATIVE: CASE EVENT DATE: 20230412
